FAERS Safety Report 6309879-X (Version None)
Quarter: 2009Q3

REPORT INFORMATION
  Report Type: 
  Country: None (occurrence: None)
  Receive Date: 20090814
  Receipt Date: 20090811
  Transmission Date: 20100115
  Serious: No
  Sender: FDA-Public Use
  Company Number: US-B.I. PHARMACEUTICALS,INC./RIDGEFIELD-2009-BP-09549BP

PATIENT
  Sex: Female

DRUGS (2)
  1. CATAPRES-TTS-1 [Suspect]
     Indication: HYPERTENSION
     Dosage: 0.1 MG
     Route: 061
     Dates: start: 20090701
  2. SINEMET [Concomitant]
     Indication: PARKINSON'S DISEASE

REACTIONS (1)
  - BLOOD PRESSURE INCREASED [None]
